FAERS Safety Report 17875317 (Version 1)
Quarter: 2020Q2

REPORT INFORMATION
  Report Type: Spontaneous
  Country: CN (occurrence: CN)
  Receive Date: 20200609
  Receipt Date: 20200609
  Transmission Date: 20200714
  Serious: Yes (Hospitalization, Other)
  Sender: FDA-Public Use
  Company Number: CN-SUN PHARMACEUTICAL INDUSTRIES LTD-2019R1-249518

PATIENT
  Age: 13 Year
  Sex: Female
  Weight: 24.5 kg

DRUGS (5)
  1. DICLOFENAC [Suspect]
     Active Substance: DICLOFENAC
     Indication: STILL^S DISEASE
     Dosage: 25 MILLIGRAM, BID
     Route: 048
  2. METHYLPREDNISOLONE. [Suspect]
     Active Substance: METHYLPREDNISOLONE
     Indication: STILL^S DISEASE
     Dosage: 8 MILLIGRAM, DAILY
     Route: 048
  3. ETANERCEPT [Suspect]
     Active Substance: ETANERCEPT
     Indication: STILL^S DISEASE
     Dosage: 25 MILLIGRAM, WEEKLY
     Route: 058
  4. METHOTREXATE. [Suspect]
     Active Substance: METHOTREXATE
     Indication: STILL^S DISEASE
     Dosage: 12.5 MILLIGRAM, WEEKLY
     Route: 048
  5. METHYLPREDNISOLONE. [Suspect]
     Active Substance: METHYLPREDNISOLONE
     Dosage: 4 MILLIGRAM, DAILY
     Route: 048

REACTIONS (4)
  - Gastritis [Unknown]
  - Therapeutic response decreased [Unknown]
  - Osteoporosis [Unknown]
  - Spinal fracture [Unknown]
